FAERS Safety Report 8415701-8 (Version None)
Quarter: 2012Q2

REPORT INFORMATION
  Report Type: 
  Country: None (occurrence: None)
  Receive Date: 20120606
  Receipt Date: 20120601
  Transmission Date: 20120825
  Serious: No
  Sender: FDA-Public Use
  Company Number: US-PFIZER INC-2012132738

PATIENT
  Sex: Female

DRUGS (1)
  1. TYGACIL [Suspect]
     Indication: LATENT TUBERCULOSIS
     Dosage: UNK, 2X/DAY
     Route: 042
     Dates: start: 20120301, end: 20120101

REACTIONS (2)
  - DYSGEUSIA [None]
  - NAUSEA [None]
